FAERS Safety Report 6905860-8 (Version None)
Quarter: 2010Q3

REPORT INFORMATION
  Report Type: 
  Country: None (occurrence: None)
  Receive Date: 20100804
  Receipt Date: 20100721
  Transmission Date: 20110219
  Serious: Yes (Hospitalization)
  Sender: FDA-Public Use
  Company Number: IL-ELI_LILLY_AND_COMPANY-IL201006005470

PATIENT
  Sex: Female

DRUGS (3)
  1. EFFIENT [Suspect]
     Indication: THROMBOSIS
     Dosage: 60 MG, UNKNOWN
     Route: 065
  2. INTEGRILIN [Concomitant]
     Dosage: UNK UNK, UNKNOWN
     Route: 065
  3. CLOPIDOGREL [Concomitant]
     Dosage: UNK, UNKNOWN
     Route: 065

REACTIONS (1)
  - BLOOD PRESSURE DECREASED [None]
